FAERS Safety Report 10969759 (Version 8)
Quarter: 2017Q1

REPORT INFORMATION
  Report Type: Spontaneous
  Country: AR (occurrence: AR)
  Receive Date: 20150331
  Receipt Date: 20170119
  Transmission Date: 20170428
  Serious: Yes (Other)
  Sender: FDA-Public Use
  Company Number: AR-ROCHE-1557627

PATIENT
  Age: 72 Year
  Sex: Female

DRUGS (10)
  1. XOLAIR [Suspect]
     Active Substance: OMALIZUMAB
     Indication: BRONCHIECTASIS
     Dosage: 4 VIALS (150 MG) EVERY 2 WEEKS
     Route: 065
     Dates: start: 20130326
  2. XOLAIR [Suspect]
     Active Substance: OMALIZUMAB
     Dosage: 2 DF (150 MG) EVERY 2 WEEKS
     Route: 065
     Dates: start: 201010
  3. XOLAIR [Suspect]
     Active Substance: OMALIZUMAB
     Dosage: 2 DF (150 MG)
     Route: 065
     Dates: start: 20161214, end: 20161214
  4. XOLAIR [Suspect]
     Active Substance: OMALIZUMAB
     Route: 065
     Dates: start: 2013
  5. POLPER B12 [Concomitant]
     Indication: PRODUCT USED FOR UNKNOWN INDICATION
     Route: 065
  6. XOLAIR [Suspect]
     Active Substance: OMALIZUMAB
     Dosage: 150 MG (4 PER MONTH)
     Route: 065
     Dates: start: 201609
  7. IPRATROPIUM [Concomitant]
     Active Substance: IPRATROPIUM
     Indication: PRODUCT USED FOR UNKNOWN INDICATION
     Route: 055
  8. XOLAIR [Suspect]
     Active Substance: OMALIZUMAB
     Indication: ASTHMA
     Dosage: FOUR MONTHLY  APPLICATIONS
     Route: 065
     Dates: start: 2013
  9. XOLAIR [Suspect]
     Active Substance: OMALIZUMAB
     Route: 065
     Dates: start: 201502
  10. XOLAIR [Suspect]
     Active Substance: OMALIZUMAB
     Route: 065
     Dates: start: 20160526, end: 201608

REACTIONS (30)
  - Productive cough [Not Recovered/Not Resolved]
  - Sensitivity to weather change [Unknown]
  - Pneumonia [Recovered/Resolved]
  - Humerus fracture [Recovered/Resolved]
  - Anaemia [Recovering/Resolving]
  - Pain in extremity [Recovered/Resolved]
  - Infective exacerbation of bronchiectasis [Recovered/Resolved]
  - Fall [Unknown]
  - Decreased appetite [Recovering/Resolving]
  - Aphonia [Recovered/Resolved]
  - Balance disorder [Unknown]
  - Malaise [Not Recovered/Not Resolved]
  - Nasopharyngitis [Recovering/Resolving]
  - Chest pain [Recovering/Resolving]
  - Allergy to plants [Unknown]
  - Upper limb fracture [Recovered/Resolved]
  - Hypersensitivity [Not Recovered/Not Resolved]
  - Finger deformity [Recovered/Resolved]
  - Urinary tract infection [Recovered/Resolved]
  - Pyrexia [Not Recovered/Not Resolved]
  - Abdominal pain upper [Unknown]
  - Influenza [Recovering/Resolving]
  - Dysphonia [Unknown]
  - Pulmonary pain [Recovered/Resolved]
  - Off label use [Unknown]
  - Anxiety [Recovered/Resolved]
  - Fracture [Recovered/Resolved]
  - Vitamin B12 deficiency [Unknown]
  - Vomiting [Not Recovered/Not Resolved]
  - Fear [Recovering/Resolving]

NARRATIVE: CASE EVENT DATE: 201501
